FAERS Safety Report 10605632 (Version 1)
Quarter: 2014Q4

REPORT INFORMATION
  Report Type: Other
  Country: IT (occurrence: IT)
  Receive Date: 20141125
  Receipt Date: 20141125
  Transmission Date: 20150529
  Serious: Yes (Hospitalization)
  Sender: FDA-Public Use
  Company Number: IT-SUN PHARMACEUTICAL INDUSTRIES LTD-2014SUN02648

PATIENT
  Age: 87 Year
  Sex: Female
  Weight: 46 kg

DRUGS (2)
  1. CARBOPLATINO SUN 10 MG/ML CONCENTRATO PER SOLUZIONE PER INFUSIONE [Suspect]
     Active Substance: CARBOPLATIN
     Indication: PERITONEAL CARCINOMA METASTATIC
     Dosage: 94.2 MG/M2 CYCLICAL
     Route: 042
     Dates: start: 20140930, end: 20141028
  2. ONDANSETRON [Concomitant]
     Active Substance: ONDANSETRON
     Dosage: 4 MILLIGRAMMI
     Route: 042

REACTIONS (4)
  - Back pain [Recovering/Resolving]
  - Hypertensive crisis [Recovering/Resolving]
  - Pain in extremity [Recovering/Resolving]
  - Dyspnoea [Recovering/Resolving]

NARRATIVE: CASE EVENT DATE: 20141028
